FAERS Safety Report 22282942 (Version 1)
Quarter: 2023Q2

REPORT INFORMATION
  Report Type: Spontaneous
  Country: NO (occurrence: NO)
  Receive Date: 20230504
  Receipt Date: 20230504
  Transmission Date: 20230722
  Serious: Yes (Disabling, Other)
  Sender: FDA-Public Use
  Company Number: None

PATIENT
  Age: 34 Year
  Sex: Female
  Weight: 75 kg

DRUGS (3)
  1. DALFAMPRIDINE [Suspect]
     Active Substance: DALFAMPRIDINE
     Indication: Multiple sclerosis
     Dosage: STRENGTH: 10 MG
     Dates: start: 202204
  2. OMEGA 3 [Concomitant]
     Active Substance: CAPSAICIN
  3. TYSABRI [Concomitant]
     Active Substance: NATALIZUMAB
     Indication: Multiple sclerosis
     Dosage: STRENGTH: 20 MG/ML, STRENGTH: 20 MG
     Dates: start: 2017

REACTIONS (6)
  - Product substitution issue [Unknown]
  - Sick leave [Unknown]
  - Peroneal nerve palsy [Unknown]
  - Fatigue [Unknown]
  - Drug ineffective [Unknown]
  - Gait disturbance [Not Recovered/Not Resolved]

NARRATIVE: CASE EVENT DATE: 20220401
